FAERS Safety Report 10071253 (Version 1)
Quarter: 2014Q2

REPORT INFORMATION
  Report Type: Spontaneous
  Country: US (occurrence: US)
  Receive Date: 20140410
  Receipt Date: 20140410
  Transmission Date: 20141212
  Serious: No
  Sender: FDA-Public Use
  Company Number: US-SA-2014SA012645

PATIENT
  Age: 6 Year
  Sex: Male
  Weight: 14 kg

DRUGS (2)
  1. ALLEGRA [Suspect]
     Indication: HYPERSENSITIVITY
     Dosage: TAKEN FROM: 2 YEARS?DOSE: 1 TSP
     Route: 048
  2. ALLEGRA [Suspect]
     Indication: SINUS DISORDER
     Dosage: TAKEN FROM: 2 YEARS?DOSE: 1 TSP
     Route: 048

REACTIONS (2)
  - Fatigue [Not Recovered/Not Resolved]
  - Extra dose administered [Unknown]
